FAERS Safety Report 11940351 (Version 1)
Quarter: 2016Q1

REPORT INFORMATION
  Report Type: Spontaneous
  Country: US (occurrence: US)
  Receive Date: 20160122
  Receipt Date: 20160122
  Transmission Date: 20160526
  Serious: Yes (Other)
  Sender: FDA-Public Use
  Company Number: US-PFIZER INC-2016035085

PATIENT
  Age: 6 Decade
  Sex: Male

DRUGS (1)
  1. XANAX [Suspect]
     Active Substance: ALPRAZOLAM
     Indication: POST-TRAUMATIC STRESS DISORDER
     Dosage: UNK

REACTIONS (4)
  - Tunnel vision [Unknown]
  - Abnormal behaviour [Unknown]
  - Intentional product misuse [Unknown]
  - Sleep terror [Unknown]
